FAERS Safety Report 6228106-5 (Version None)
Quarter: 2009Q2

REPORT INFORMATION
  Report Type: 
  Country: None (occurrence: None)
  Receive Date: 20090612
  Receipt Date: 20090610
  Transmission Date: 20091009
  Serious: Yes (Life-Threatening)
  Sender: FDA-Public Use
  Company Number: US-JNJFOC-20090603859

PATIENT
  Sex: Female
  Weight: 108.86 kg

DRUGS (2)
  1. ORTHO EVRA [Suspect]
     Indication: CONTRACEPTION
     Route: 062
  2. NICOTINE [Concomitant]
     Indication: SMOKING CESSATION THERAPY
     Route: 065

REACTIONS (1)
  - PULMONARY THROMBOSIS [None]
